FAERS Safety Report 6366494-X (Version None)
Quarter: 2009Q3

REPORT INFORMATION
  Report Type: 
  Country: None (occurrence: None)
  Receive Date: 20090921
  Receipt Date: 20090911
  Transmission Date: 20100115
  Serious: Yes (Hospitalization)
  Sender: FDA-Public Use
  Company Number: SE-ASTRAZENECA-2009SE12878

PATIENT
  Age: 67 Year
  Sex: Female

DRUGS (3)
  1. ATACAND [Suspect]
     Route: 048
  2. NSAID [Interacting]
     Route: 048
  3. SPIRONOLAKTON [Interacting]
     Route: 048

REACTIONS (2)
  - DRUG INTERACTION [None]
  - HYPERKALAEMIA [None]
